FAERS Safety Report 11673844 (Version 4)
Quarter: 2016Q1

REPORT INFORMATION
  Report Type: Report from Study
  Country: CN (occurrence: CN)
  Receive Date: 20151028
  Receipt Date: 20160219
  Transmission Date: 20160525
  Serious: Yes (Death)
  Sender: FDA-Public Use
  Company Number: CN-EISAI MEDICAL RESEARCH-EC-2015-011120

PATIENT
  Age: 51 Year
  Sex: Male
  Weight: 85 kg

DRUGS (1)
  1. LENVATINIB [Suspect]
     Active Substance: LENVATINIB
     Indication: HEPATOCELLULAR CARCINOMA
     Route: 048
     Dates: start: 20141225, end: 20151001

REACTIONS (1)
  - Death [Fatal]

NARRATIVE: CASE EVENT DATE: 20151001
